FAERS Safety Report 4994195-9 (Version None)
Quarter: 2006Q2

REPORT INFORMATION
  Report Type: 
  Country: None (occurrence: None)
  Receive Date: 20060503
  Receipt Date: 20060419
  Transmission Date: 20061013
  Serious: Yes (Death, Other)
  Sender: FDA-Public Use
  Company Number: JP_050606767

PATIENT
  Age: 51 Year
  Sex: Male
  Weight: 63.8 kg

DRUGS (2)
  1. GEMZAR [Suspect]
     Indication: LUNG ADENOCARCINOMA STAGE III
     Dosage: 1700 MG, OTHER, INTRAVENOUS
     Route: 042
     Dates: start: 20030925, end: 20031107
  2. CARBOPLATIN [Concomitant]

REACTIONS (12)
  - BLOOD PRESSURE DECREASED [None]
  - CANDIDIASIS [None]
  - DISSEMINATED INTRAVASCULAR COAGULATION [None]
  - ENTEROCOCCAL INFECTION [None]
  - PANCREATIC NECROSIS [None]
  - PLEURAL EFFUSION [None]
  - PNEUMONITIS [None]
  - PULMONARY ALVEOLAR HAEMORRHAGE [None]
  - RASH [None]
  - SPUTUM CULTURE POSITIVE [None]
  - THROMBOSIS [None]
  - WHITE BLOOD CELL COUNT DECREASED [None]
